FAERS Safety Report 21333775 (Version 2)
Quarter: 2022Q3

REPORT INFORMATION
  Report Type: Spontaneous
  Country: US (occurrence: US)
  Receive Date: 20220914
  Receipt Date: 20220916
  Transmission Date: 20221027
  Serious: No
  Sender: FDA-Public Use
  Company Number: US-PFIZER INC-PV202200062123

PATIENT
  Age: 49 Year
  Sex: Female
  Weight: 78.47 kg

DRUGS (1)
  1. METRONIDAZOLE [Suspect]
     Active Substance: METRONIDAZOLE
     Indication: Bacterial vaginosis
     Dosage: 500 MG
     Route: 048

REACTIONS (2)
  - Drug hypersensitivity [Unknown]
  - Illness [Unknown]
